FAERS Safety Report 10402423 (Version 1)
Quarter: 2014Q3

REPORT INFORMATION
  Report Type: Spontaneous
  Country: NZ (occurrence: None)
  Receive Date: 20140820
  Receipt Date: 20140820
  Transmission Date: 20150326
  Serious: Yes (Other)
  Sender: FDA-Public Use
  Company Number: IPC201408-000412

PATIENT
  Age: 16 Year
  Sex: Male

DRUGS (2)
  1. ASPIRIN (ASPIRIN) (ASPIRIN) [Concomitant]
     Active Substance: ASPIRIN
  2. WARFARIN (WARFARIN) (WARFARIN) [Suspect]
     Active Substance: WARFARIN
     Indication: PULMONARY INFARCTION

REACTIONS (3)
  - Vitamin D deficiency [None]
  - Pulmonary embolism [None]
  - Tracheal calcification [None]
